FAERS Safety Report 10961856 (Version 2)
Quarter: 2019Q3

REPORT INFORMATION
  Report Type: Spontaneous
  Country: US (occurrence: US)
  Receive Date: 20150327
  Receipt Date: 20190823
  Transmission Date: 20191004
  Serious: Yes (Death, Hospitalization, Other)
  Sender: FDA-Public Use
  Company Number: US-009507513-1503USA013068

PATIENT
  Sex: Female
  Weight: 55.78 kg

DRUGS (3)
  1. JANUVIA [Suspect]
     Active Substance: SITAGLIPTIN PHOSPHATE
     Dosage: 100 MILLIGRAM, ONCE A DAY
     Route: 048
     Dates: start: 20120103, end: 201303
  2. LANTUS [Concomitant]
     Active Substance: INSULIN GLARGINE
     Dosage: 20 UNITS, Q6P
  3. METOPROLOL. [Concomitant]
     Active Substance: METOPROLOL
     Dosage: 100 MILLIGRAM, BID
     Route: 048
     Dates: start: 20121210

REACTIONS (25)
  - Cardiac failure congestive [Unknown]
  - Impaired self-care [Unknown]
  - Osteoarthritis [Unknown]
  - Vomiting [Recovered/Resolved]
  - Herpes zoster [Unknown]
  - Atrial tachycardia [Unknown]
  - Oedema peripheral [Unknown]
  - Decubitus ulcer [Unknown]
  - Cough [Unknown]
  - Brain operation [Unknown]
  - Nephrolithiasis [Unknown]
  - Atrial fibrillation [Unknown]
  - Confusional state [Unknown]
  - Pain [Unknown]
  - Urinary incontinence [Unknown]
  - Constipation [Unknown]
  - Vomiting [Unknown]
  - Carbohydrate antigen 19-9 increased [Unknown]
  - Pancreatic carcinoma [Fatal]
  - Metastases to lung [Unknown]
  - Cachexia [Unknown]
  - Hyperbilirubinaemia [Unknown]
  - Asthenia [Recovered/Resolved]
  - Hypothyroidism [Unknown]
  - Dyspnoea [Unknown]

NARRATIVE: CASE EVENT DATE: 20121213
